FAERS Safety Report 13543777 (Version 1)
Quarter: 2017Q2

REPORT INFORMATION
  Report Type: Spontaneous
  Country: DE (occurrence: DE)
  Receive Date: 20170515
  Receipt Date: 20170515
  Transmission Date: 20170830
  Serious: Yes (Other)
  Sender: FDA-Public Use
  Company Number: DE-AUROBINDO-AUR-APL-2017-29150

PATIENT
  Age: 3 Month
  Sex: Male
  Weight: 4 kg

DRUGS (1)
  1. BUCAIN 5 MG/ML SOLUTION FOR INJECTION AMPOULS [Suspect]
     Active Substance: BUPIVACAINE
     Indication: INGUINAL HERNIA
     Dosage: UNK
     Route: 037
     Dates: start: 20170117, end: 20170117

REACTIONS (1)
  - Drug ineffective [Recovered/Resolved]

NARRATIVE: CASE EVENT DATE: 20170117
